FAERS Safety Report 9594918 (Version 2)
Quarter: 2013Q4

REPORT INFORMATION
  Report Type: Spontaneous
  Country: US (occurrence: US)
  Receive Date: 20131004
  Receipt Date: 20131004
  Transmission Date: 20140711
  Serious: No
  Sender: FDA-Public Use
  Company Number: US-PURDUE-USA-2012-0093748

PATIENT
  Age: 50 Year
  Sex: Female

DRUGS (2)
  1. BUTRANS [Suspect]
     Indication: NECK PAIN
     Dosage: 10 MCG, UNK
     Route: 062
     Dates: start: 20120919
  2. BUTRANS [Suspect]
     Indication: BACK PAIN

REACTIONS (7)
  - Nausea [Unknown]
  - Vomiting [Recovered/Resolved]
  - Pain [Unknown]
  - Application site rash [Unknown]
  - Application site exfoliation [Unknown]
  - Application site pruritus [Unknown]
  - Musculoskeletal stiffness [Unknown]
